FAERS Safety Report 14107680 (Version 1)
Quarter: 2017Q4

REPORT INFORMATION
  Report Type: Spontaneous
  Country: MX (occurrence: MX)
  Receive Date: 20171019
  Receipt Date: 20171019
  Transmission Date: 20180321
  Serious: Yes (Death, Hospitalization, Other)
  Sender: FDA-Public Use
  Company Number: MX-ACTELION-A-CH2017-161042

PATIENT
  Age: 59 Year
  Sex: Female

DRUGS (4)
  1. OXYGEN. [Concomitant]
     Active Substance: OXYGEN
  2. THEOPHYLLINE [Concomitant]
     Active Substance: THEOPHYLLINE ANHYDROUS
     Indication: PULMONARY FIBROSIS
  3. FLUTICASONE. [Concomitant]
     Active Substance: FLUTICASONE
     Indication: PULMONARY FIBROSIS
  4. ZEPENDO [Suspect]
     Active Substance: MACITENTAN
     Indication: PULMONARY ARTERIAL HYPERTENSION
     Dosage: 10 MG, OD
     Route: 048
     Dates: start: 20170720, end: 20171007

REACTIONS (3)
  - Sepsis [Fatal]
  - Pericardial excision [Unknown]
  - Pericardial effusion [Unknown]
